FAERS Safety Report 24282228 (Version 1)
Quarter: 2024Q3

REPORT INFORMATION
  Report Type: Spontaneous
  Country: US (occurrence: None)
  Receive Date: 20240903
  Receipt Date: 20240903
  Transmission Date: 20241017
  Serious: Yes (Other)
  Sender: Public
  Company Number: None

PATIENT
  Sex: 0

DRUGS (1)
  1. REPATHA [Suspect]
     Active Substance: EVOLOCUMAB
     Indication: Blood cholesterol
     Dates: start: 20240810, end: 20240824

REACTIONS (2)
  - Joint swelling [None]
  - Gait inability [None]

NARRATIVE: CASE EVENT DATE: 20240831
